FAERS Safety Report 19745220 (Version 1)
Quarter: 2021Q3

REPORT INFORMATION
  Report Type: Spontaneous
  Country: US (occurrence: US)
  Receive Date: 20210824
  Receipt Date: 20210824
  Transmission Date: 20211014
  Serious: Yes (Other)
  Sender: FDA-Public Use
  Company Number: None

PATIENT
  Age: 72 Year
  Sex: Female
  Weight: 47.25 kg

DRUGS (3)
  1. FLUTICASONE. [Concomitant]
     Active Substance: FLUTICASONE
  2. WIXELA INHUB [Suspect]
     Active Substance: FLUTICASONE PROPIONATE\SALMETEROL XINAFOATE
     Indication: ASTHMA
     Dosage: ?          QUANTITY:1 PUFF(S);?
     Route: 055
     Dates: start: 20210712, end: 20210820
  3. ADVAIR HFA [Concomitant]
     Active Substance: FLUTICASONE PROPIONATE\SALMETEROL XINAFOATE

REACTIONS (4)
  - Pulmonary congestion [None]
  - Product substitution issue [None]
  - Insomnia [None]
  - Cough [None]

NARRATIVE: CASE EVENT DATE: 20210820
